FAERS Safety Report 18700947 (Version 1)
Quarter: 2021Q1

REPORT INFORMATION
  Report Type: Spontaneous
  Country: US (occurrence: US)
  Receive Date: 20210105
  Receipt Date: 20210105
  Transmission Date: 20210419
  Serious: No
  Sender: FDA-Public Use
  Company Number: US-SA-2020SA373218

PATIENT

DRUGS (1)
  1. DUPIXENT [Suspect]
     Active Substance: DUPILUMAB
     Indication: DERMATITIS ATOPIC

REACTIONS (5)
  - Drug ineffective [Unknown]
  - Eye pruritus [Unknown]
  - Vitreous floaters [Unknown]
  - Vision blurred [Unknown]
  - Weight increased [Unknown]

NARRATIVE: CASE EVENT DATE: 20190921
